FAERS Safety Report 5283629-0 (Version None)
Quarter: 2007Q1

REPORT INFORMATION
  Report Type: 
  Country: None (occurrence: None)
  Receive Date: 20061226
  Receipt Date: 20061025
  Transmission Date: 20070707
  Serious: No
  Sender: FDA-Public Use
  Company Number: PHEH2006US13381

PATIENT
  Age: 75 Year
  Sex: Male

DRUGS (1)
  1. ENABLEX [Suspect]
     Dosage: 15 MG, QD;
     Dates: start: 20061024

REACTIONS (1)
  - DRY MOUTH [None]
